FAERS Safety Report 18710640 (Version 1)
Quarter: 2021Q1

REPORT INFORMATION
  Report Type: Spontaneous
  Country: US (occurrence: US)
  Receive Date: 20210107
  Receipt Date: 20210107
  Transmission Date: 20210419
  Serious: No
  Sender: FDA-Public Use
  Company Number: US-AUROBINDO-AUR-APL-2019-106373

PATIENT
  Age: 66 Year
  Sex: Male

DRUGS (2)
  1. SILDENAFIL CITRATE TABLETS 20MG [Suspect]
     Active Substance: SILDENAFIL CITRATE
     Dosage: HALF A TABLET THREE TIMES A DAY
     Route: 065
  2. SILDENAFIL CITRATE TABLETS 20MG [Suspect]
     Active Substance: SILDENAFIL CITRATE
     Indication: PRODUCT USED FOR UNKNOWN INDICATION
     Dosage: 1 DOSAGE FORM (WHOLE TABLET)
     Route: 065

REACTIONS (2)
  - Blood pressure decreased [Recovered/Resolved]
  - Incorrect dose administered [Unknown]
